FAERS Safety Report 9465841 (Version 1)
Quarter: 2013Q3

REPORT INFORMATION
  Report Type: Report from Study
  Country: US (occurrence: US)
  Receive Date: 20130820
  Receipt Date: 20130820
  Transmission Date: 20140515
  Serious: Yes (Hospitalization)
  Sender: FDA-Public Use
  Company Number: US-SANOFI-AVENTIS-2013SA082770

PATIENT
  Age: 60 Year
  Sex: 0

DRUGS (4)
  1. RIFAPENTINE [Suspect]
     Indication: LATENT TUBERCULOSIS
     Route: 048
  2. RIFAPENTINE [Suspect]
     Indication: LATENT TUBERCULOSIS
     Route: 048
  3. RIFAPENTINE [Suspect]
     Indication: LATENT TUBERCULOSIS
     Route: 048
  4. RIFAPENTINE [Suspect]
     Indication: LATENT TUBERCULOSIS
     Route: 048

REACTIONS (4)
  - Hypotension [Recovered/Resolved]
  - Headache [Recovered/Resolved]
  - Nausea [Recovered/Resolved]
  - Pyrexia [Unknown]
